FAERS Safety Report 7605201-7 (Version None)
Quarter: 2011Q3

REPORT INFORMATION
  Report Type: 
  Country: None (occurrence: None)
  Receive Date: 20110705
  Receipt Date: 20110620
  Transmission Date: 20111222
  Serious: Yes (Death, Hospitalization, Other)
  Sender: FDA-Public Use
  Company Number: 2011MA007764

PATIENT
  Age: 8 Month
  Sex: Female
  Weight: 4.3 kg

DRUGS (5)
  1. ETHAMBUTOL HYDROCHLORIDE [Suspect]
     Indication: TUBERCULOSIS
     Dosage: 20 MG/KG;QD
  2. RIFAMPIN [Suspect]
     Indication: TUBERCULOSIS
     Dosage: 20 MG/KG; QD
  3. ISONIAZID [Suspect]
     Indication: TUBERCULOSIS
     Dosage: 20 MG/KG; QD;
  4. COTRIMOXAZOLE (NO PREF. NAME) [Suspect]
     Indication: PROPHYLAXIS
  5. PYRAZINAMIDE [Suspect]
     Indication: TUBERCULOSIS
     Dosage: 40 MG/KG; QD;

REACTIONS (12)
  - VACCINATION FAILURE [None]
  - IMMUNE RECONSTITUTION SYNDROME [None]
  - COAGULOPATHY [None]
  - LYMPHADENITIS [None]
  - ORAL CANDIDIASIS [None]
  - HEPATIC ENCEPHALOPATHY [None]
  - BRAIN OEDEMA [None]
  - ENCEPHALOPATHY [None]
  - ACUTE HEPATIC FAILURE [None]
  - HEPATIC FAILURE [None]
  - HEPATOSPLENOMEGALY [None]
  - FAILURE TO THRIVE [None]
